APPROVED DRUG PRODUCT: FLUONID
Active Ingredient: FLUOCINOLONE ACETONIDE
Strength: 0.025%
Dosage Form/Route: OINTMENT;TOPICAL
Application: A087157 | Product #001
Applicant: ALLERGAN HERBERT DIV ALLERGAN INC
Approved: Sep 6, 1984 | RLD: No | RS: No | Type: DISCN